FAERS Safety Report 16538080 (Version 3)
Quarter: 2019Q3

REPORT INFORMATION
  Report Type: Report from Study
  Country: US (occurrence: US)
  Receive Date: 20190708
  Receipt Date: 20190925
  Transmission Date: 20191004
  Serious: No
  Sender: FDA-Public Use
  Company Number: US-SA-2019SA177925

PATIENT
  Age: 66 Year
  Sex: Female

DRUGS (1)
  1. ALIROCUMAB [Suspect]
     Active Substance: ALIROCUMAB
     Dosage: 75 MG, QOW
     Route: 058
     Dates: start: 2019, end: 20190725

REACTIONS (9)
  - Weight increased [Unknown]
  - Chest pain [Unknown]
  - Acne [Unknown]
  - Swelling [Unknown]
  - Gastric disorder [Unknown]
  - Incorrect dose administered [Unknown]
  - Device issue [Unknown]
  - Alopecia [Unknown]
  - Injection site swelling [Unknown]

NARRATIVE: CASE EVENT DATE: 201906
